FAERS Safety Report 20341847 (Version 1)
Quarter: 2022Q1

REPORT INFORMATION
  Report Type: Report from Study
  Country: US (occurrence: None)
  Receive Date: 20220117
  Receipt Date: 20220117
  Transmission Date: 20220424
  Serious: Yes (Hospitalization, Other)
  Sender: FDA-Public Use
  Company Number: US-ROCHE-2786730

PATIENT
  Age: 22 Year
  Sex: Male
  Weight: 77.8 kg

DRUGS (6)
  1. ATEZOLIZUMAB [Suspect]
     Active Substance: ATEZOLIZUMAB
     Indication: Colon cancer
     Dosage: 840 MG INTRAVENOUS ON DAY 1 CYCLES 13-25?ON 06/MAY/2019, RECEIVED LAST DOSE OF ATEZOLIZUMAB
     Route: 042
     Dates: start: 20181219
  2. OXALIPLATIN [Suspect]
     Active Substance: OXALIPLATIN
     Indication: Colon cancer
     Dosage: OVER 2 HOURS ON DAY 1
     Route: 042
     Dates: start: 20181219
  3. LEUCOVORIN CALCIUM [Suspect]
     Active Substance: LEUCOVORIN CALCIUM
     Indication: Colon cancer
     Dosage: OVER 2 HOURS ON DAY 1
     Route: 042
     Dates: start: 20181219
  4. FLUOROURACIL [Suspect]
     Active Substance: FLUOROURACIL
     Indication: Colon cancer
     Dosage: BOLUS ON DAY 1 FOLLOWED BY 2400MG/M2 IV OVER 46 HOURS DAYS 1-3
     Route: 040
     Dates: start: 20181219
  5. BENADRYL [Concomitant]
     Active Substance: DIPHENHYDRAMINE HYDROCHLORIDE
     Indication: Pruritus
  6. ZINC OXIDE [Concomitant]
     Active Substance: ZINC OXIDE
     Indication: Pruritus

REACTIONS (2)
  - Pyrexia [Recovered/Resolved]
  - Sepsis [Unknown]

NARRATIVE: CASE EVENT DATE: 20190506
